FAERS Safety Report 13843573 (Version 1)
Quarter: 2017Q3

REPORT INFORMATION
  Report Type: Spontaneous
  Country: US (occurrence: US)
  Receive Date: 20170808
  Receipt Date: 20170808
  Transmission Date: 20171127
  Serious: Yes (Death)
  Sender: FDA-Public Use
  Company Number: US-GE HEALTHCARE LIFE SCIENCES-OSCN-PR-1701S-0005

PATIENT
  Age: 63 Year
  Sex: Female

DRUGS (4)
  1. OMNISCAN [Suspect]
     Active Substance: GADODIAMIDE
     Indication: RENAL FAILURE
     Dosage: 40 ML, SINGLE
     Route: 065
     Dates: start: 20050321, end: 20050321
  2. OMNIPAQUE [Concomitant]
     Active Substance: IOHEXOL
     Indication: PRODUCT USED FOR UNKNOWN INDICATION
     Dosage: 1000 ML, SINGLE
     Route: 048
     Dates: start: 20150326, end: 20150326
  3. OMNIPAQUE [Concomitant]
     Active Substance: IOHEXOL
     Indication: PRODUCT USED FOR UNKNOWN INDICATION
     Dosage: 55 ML, SINGLE
     Route: 042
     Dates: start: 20150220, end: 20150220
  4. VISIPAQUE [Concomitant]
     Active Substance: IODIXANOL
     Route: 042

REACTIONS (2)
  - Nephrogenic systemic fibrosis [Fatal]
  - End stage renal disease [Fatal]

NARRATIVE: CASE EVENT DATE: 20150410
